FAERS Safety Report 4844806-3 (Version None)
Quarter: 2005Q4

REPORT INFORMATION
  Report Type: 
  Country: None (occurrence: None)
  Receive Date: 20051129
  Receipt Date: 20051115
  Transmission Date: 20060501
  Serious: Yes (Other)
  Sender: FDA-Public Use
  Company Number: PHNU2005DE03421

PATIENT
  Age: 84 Year
  Sex: Male

DRUGS (2)
  1. VISUDYNE [Suspect]
     Indication: MACULAR DEGENERATION
     Dosage: 15 ML DAILY IV
     Route: 042
     Dates: start: 20050720, end: 20050720
  2. TRIAMCINOLONE [Suspect]
     Indication: MACULAR DEGENERATION
     Dates: start: 20050721, end: 20050721

REACTIONS (5)
  - CHOROIDAL NEOVASCULARISATION [None]
  - DETACHMENT OF RETINAL PIGMENT EPITHELIUM [None]
  - FLUID RETENTION [None]
  - RETINAL DEGENERATION [None]
  - RETINAL HAEMORRHAGE [None]
